FAERS Safety Report 8436681-5 (Version None)
Quarter: 2012Q2

REPORT INFORMATION
  Report Type: 
  Country: None (occurrence: None)
  Receive Date: 20120323
  Receipt Date: 20110623
  Transmission Date: 20120825
  Serious: Yes (Other)
  Sender: FDA-Public Use
  Company Number: 163-21880-11063316

PATIENT
  Age: 65 Year
  Sex: Male
  Weight: 164.6557 kg

DRUGS (7)
  1. REVLIMID [Suspect]
     Indication: MULTIPLE MYELOMA
     Dosage: 10 MG, 1 IN 1 D, PO 25 MG, 21 DAY/28 DAY, PO
     Route: 048
     Dates: start: 20110501, end: 20110601
  2. REVLIMID [Suspect]
     Indication: MULTIPLE MYELOMA
     Dosage: 10 MG, 1 IN 1 D, PO 25 MG, 21 DAY/28 DAY, PO
     Route: 048
     Dates: start: 20091201
  3. METHYLPREDNISOLONE [Concomitant]
  4. POTASSIUM (POTASSIUM) (TABLETS) [Concomitant]
  5. VELCADE [Concomitant]
  6. LISINOPRIL [Concomitant]
  7. ALLOPURINOL [Concomitant]

REACTIONS (1)
  - MULTIPLE MYELOMA [None]
